FAERS Safety Report 5450093-8 (Version None)
Quarter: 2007Q3

REPORT INFORMATION
  Report Type: 
  Country: None (occurrence: None)
  Receive Date: 20070912
  Receipt Date: 20070907
  Transmission Date: 20080115
  Serious: Yes (Hospitalization)
  Sender: FDA-Public Use
  Company Number: DE-BRISTOL-MYERS SQUIBB COMPANY-13903992

PATIENT
  Sex: Female

DRUGS (2)
  1. COAPROVEL TABS 300MG/ 25MG [Suspect]
     Indication: HYPERTENSION
     Dosage: THERAPY DURATION GIVEN AS UNKNOWN-TIME TO ONSET:A FEW WEEKS
     Route: 048
     Dates: start: 20070501, end: 20070101
  2. TORSEMIDE [Concomitant]

REACTIONS (5)
  - BLOOD CREATININE INCREASED [None]
  - GLOMERULONEPHRITIS [None]
  - INFLAMMATION [None]
  - PYREXIA [None]
  - RED BLOOD CELL SEDIMENTATION RATE INCREASED [None]
